FAERS Safety Report 8091254-1 (Version None)
Quarter: 2012Q1

REPORT INFORMATION
  Report Type: 
  Country: None (occurrence: None)
  Receive Date: 20120129
  Receipt Date: 20111024
  Transmission Date: 20120608
  Serious: No
  Sender: FDA-Public Use
  Company Number: US-ABBOTT-11P-163-0868244-00

PATIENT
  Age: 64 Year
  Sex: Female

DRUGS (12)
  1. FENTANYL [Concomitant]
     Indication: PRODUCT USED FOR UNKNOWN INDICATION
     Dosage: 25 MG AND 12 MG USED AT ONE TIME
  2. FENTANYL [Concomitant]
     Dosage: 25 MG AND 12 MG USED AT ONE TIME
  3. PREVACID [Concomitant]
     Indication: PRODUCT USED FOR UNKNOWN INDICATION
  4. PRAVASTATIN [Concomitant]
     Indication: PRODUCT USED FOR UNKNOWN INDICATION
     Dosage: 1/2 TABLET AT HOUR OF SLEEP
  5. TIZANIDINE HCL [Concomitant]
     Indication: PRODUCT USED FOR UNKNOWN INDICATION
  6. NOVOLIN 70/30 [Concomitant]
     Indication: DIABETES MELLITUS
     Dosage: 26-30 UNITS
  7. PLAVIX [Concomitant]
     Indication: PRODUCT USED FOR UNKNOWN INDICATION
  8. XANAX [Concomitant]
     Indication: PRODUCT USED FOR UNKNOWN INDICATION
     Dosage: 3 TIMES A DAY AS NEEDED
  9. HUMIRA [Suspect]
     Indication: PSORIASIS
     Dates: start: 20080101
  10. LEVEMIR [Concomitant]
     Indication: DIABETES MELLITUS
     Dosage: AT HOUR OF SLEEP
  11. ENTOCORT EC [Concomitant]
     Indication: PRODUCT USED FOR UNKNOWN INDICATION
  12. LYRICA [Concomitant]
     Indication: PRODUCT USED FOR UNKNOWN INDICATION

REACTIONS (5)
  - INFLAMMATION [None]
  - OSTEOARTHRITIS [None]
  - INJECTION SITE PAIN [None]
  - RESPIRATORY TRACT INFECTION [None]
  - VULVOVAGINAL PRURITUS [None]
